FAERS Safety Report 20796374 (Version 1)
Quarter: 2022Q2

REPORT INFORMATION
  Report Type: Spontaneous
  Country: US (occurrence: US)
  Receive Date: 20220506
  Receipt Date: 20220506
  Transmission Date: 20220721
  Serious: No
  Sender: FDA-Public Use
  Company Number: US-PFIZER INC-202101647361

PATIENT
  Age: 75 Year
  Sex: Male

DRUGS (1)
  1. RAPAMUNE [Suspect]
     Active Substance: SIROLIMUS
     Dosage: ALTERNATE 1 MG EVERY OTHER DAY WITH 2 PILLS EVERY OTHER DAY

REACTIONS (1)
  - Off label use [Unknown]
